FAERS Safety Report 14634454 (Version 2)
Quarter: 2018Q1

REPORT INFORMATION
  Report Type: Report from Study
  Country: BR (occurrence: BR)
  Receive Date: 20180314
  Receipt Date: 20180314
  Transmission Date: 20180509
  Serious: Yes (Other)
  Sender: FDA-Public Use
  Company Number: PHHY2018BR022299

PATIENT
  Age: 68 Year
  Sex: Female
  Weight: 58 kg

DRUGS (5)
  1. ASA [Concomitant]
     Active Substance: ASPIRIN
     Indication: ANGIOPLASTY
     Dosage: 1 DF, QD (5 YEARS AGO)
     Route: 048
  2. DIOVAN [Suspect]
     Active Substance: VALSARTAN
     Indication: HYPERTENSION
     Dosage: 80 MG, QD
     Route: 048
  3. ATENOLOL. [Suspect]
     Active Substance: ATENOLOL
     Dosage: 25 MG, QD (5 YEARS AGO)
     Route: 048
  4. DIOVAN HCT [Suspect]
     Active Substance: HYDROCHLOROTHIAZIDE\VALSARTAN
     Indication: HYPERTENSION
     Dosage: 1 DF (80/5 MG), QHS
     Route: 048
  5. ATENOLOL. [Suspect]
     Active Substance: ATENOLOL
     Indication: HYPERTENSION
     Dosage: 100 MG, UNK
     Route: 065

REACTIONS (17)
  - Mobility decreased [Recovering/Resolving]
  - Malaise [Recovering/Resolving]
  - Gait inability [Recovering/Resolving]
  - Depression [Recovering/Resolving]
  - Visual impairment [Unknown]
  - Spinal fracture [Recovering/Resolving]
  - Musculoskeletal stiffness [Recovering/Resolving]
  - Weight decreased [Recovering/Resolving]
  - Paraesthesia [Recovering/Resolving]
  - Coronary artery occlusion [Unknown]
  - Accident [Recovered/Resolved]
  - Lower limb fracture [Recovering/Resolving]
  - Nausea [Recovered/Resolved]
  - Pain [Unknown]
  - Dyspnoea [Unknown]
  - Post procedural complication [Recovering/Resolving]
  - Hypophagia [Recovered/Resolved]

NARRATIVE: CASE EVENT DATE: 20171220
